FAERS Safety Report 13814639 (Version 3)
Quarter: 2017Q3

REPORT INFORMATION
  Report Type: Spontaneous
  Country: JP (occurrence: JP)
  Receive Date: 20170731
  Receipt Date: 20170906
  Transmission Date: 20171127
  Serious: Yes (Other)
  Sender: FDA-Public Use
  Company Number: JP-ELI_LILLY_AND_COMPANY-JP201707009699

PATIENT
  Age: 43 Year
  Sex: Female
  Weight: 53 kg

DRUGS (6)
  1. CARBOPLATIN. [Suspect]
     Active Substance: CARBOPLATIN
     Dosage: UNK UNK, OTHER
     Route: 041
     Dates: start: 20170110, end: 20170307
  2. PANVITAN                           /05664401/ [Concomitant]
     Indication: PROPHYLAXIS
     Dosage: 1 G, UNK
     Route: 048
     Dates: start: 20161122, end: 20170606
  3. ALIMTA [Suspect]
     Active Substance: PEMETREXED DISODIUM
     Indication: LUNG ADENOCARCINOMA RECURRENT
     Dosage: 755 MG, OTHER
     Route: 041
     Dates: start: 20161213, end: 20170307
  4. ALIMTA [Suspect]
     Active Substance: PEMETREXED DISODIUM
     Dosage: 760 MG, OTHER
     Route: 041
     Dates: start: 20170410, end: 20170614
  5. CARBOPLATIN. [Suspect]
     Active Substance: CARBOPLATIN
     Indication: LUNG ADENOCARCINOMA RECURRENT
     Dosage: 627 MG, OTHER
     Route: 041
     Dates: start: 20161213, end: 20161213
  6. METHYCOBAL [Concomitant]
     Active Substance: METHYLCOBALAMIN
     Indication: PROPHYLAXIS
     Dosage: 1000 UG, DAILY
     Route: 030
     Dates: start: 20161122, end: 20170522

REACTIONS (5)
  - Gastrointestinal disorder [Unknown]
  - Drug-induced liver injury [Recovered/Resolved]
  - Neutropenia [Unknown]
  - Liver disorder [Recovering/Resolving]
  - Malaise [Unknown]

NARRATIVE: CASE EVENT DATE: 20161220
